FAERS Safety Report 11106551 (Version 1)
Quarter: 2015Q2

REPORT INFORMATION
  Report Type: Spontaneous
  Country: TR (occurrence: None)
  Receive Date: 20150508
  Receipt Date: 20150508
  Transmission Date: 20150821
  Serious: Yes (Hospitalization)
  Sender: FDA-Public Use
  Company Number: 2015COR00085

PATIENT
  Age: 14 Year
  Sex: Female

DRUGS (3)
  1. METHYLPHENIDATE [Suspect]
     Active Substance: METHYLPHENIDATE
     Indication: MEMORY IMPAIRMENT
  2. SERTRALINE [Suspect]
     Active Substance: SERTRALINE HYDROCHLORIDE
     Indication: DEPRESSION
  3. METHYLPHENIDATE [Suspect]
     Active Substance: METHYLPHENIDATE
     Indication: DISTURBANCE IN ATTENTION

REACTIONS (6)
  - Depression [None]
  - Attention deficit/hyperactivity disorder [None]
  - Rhabdomyolysis [None]
  - Serotonin syndrome [None]
  - Loss of consciousness [None]
  - Drug interaction [None]
